FAERS Safety Report 4586753-0 (Version None)
Quarter: 2005Q1

REPORT INFORMATION
  Report Type: 
  Country: None (occurrence: None)
  Receive Date: 20050214
  Receipt Date: 20050202
  Transmission Date: 20050727
  Serious: Yes (Other)
  Sender: FDA-Public Use
  Company Number: 200510494BCC

PATIENT
  Age: 57 Year
  Sex: Female
  Weight: 79.3795 kg

DRUGS (11)
  1. E.S. BAYER BACK + BODY PAIN [Suspect]
     Indication: ARTHRITIS
     Dosage: 1000/65 MG, QID, ORAL
     Route: 048
  2. TOPAMAX [Concomitant]
  3. SEROQUEL [Concomitant]
  4. ROBAXIN [Concomitant]
  5. PROMETHAZINE [Concomitant]
  6. NORCO [Concomitant]
  7. KEFLEX [Concomitant]
  8. TRAZODONE HCL [Concomitant]
  9. NEURONTIN [Concomitant]
  10. THORAZINE [Concomitant]
  11. TEMAZEPAM [Concomitant]

REACTIONS (3)
  - ANOREXIA [None]
  - TREATMENT NONCOMPLIANCE [None]
  - WEIGHT DECREASED [None]
